FAERS Safety Report 6539460-9 (Version None)
Quarter: 2010Q1

REPORT INFORMATION
  Report Type: 
  Country: None (occurrence: None)
  Receive Date: 20100115
  Receipt Date: 20091201
  Transmission Date: 20100710
  Serious: Yes (Other)
  Sender: FDA-Public Use
  Company Number: A0775506A

PATIENT
  Age: 68 Year
  Sex: Male
  Weight: 111.8 kg

DRUGS (8)
  1. AVANDIA [Suspect]
     Indication: DIABETES MELLITUS
     Dosage: 4MG THREE TIMES PER DAY
     Route: 048
     Dates: end: 20060101
  2. STARLIX [Concomitant]
  3. VYTORIN [Concomitant]
  4. LIPITOR [Concomitant]
  5. AVAPRO [Concomitant]
  6. ZETIA [Concomitant]
  7. LIPITOR [Concomitant]
  8. RADIATION THERAPY [Concomitant]

REACTIONS (6)
  - ARTERIOSCLEROSIS CORONARY ARTERY [None]
  - ATRIAL FIBRILLATION [None]
  - CARDIAC FAILURE CONGESTIVE [None]
  - CORONARY ARTERY BYPASS [None]
  - ISCHAEMIC CARDIOMYOPATHY [None]
  - MYOCARDIAL INFARCTION [None]
